FAERS Safety Report 23642917 (Version 1)
Quarter: 2024Q1

REPORT INFORMATION
  Report Type: Spontaneous
  Country: GB (occurrence: GB)
  Receive Date: 20240318
  Receipt Date: 20240318
  Transmission Date: 20240410
  Serious: Yes (Other)
  Sender: FDA-Public Use
  Company Number: None

PATIENT
  Age: 36 Year
  Sex: Female
  Weight: 63 kg

DRUGS (3)
  1. DOXYCYCLINE [Suspect]
     Active Substance: DOXYCYCLINE
     Route: 065
  2. LEVOMEFOLIC ACID [Suspect]
     Active Substance: LEVOMEFOLIC ACID
     Route: 065
  3. OMEPRAZOLE [Suspect]
     Active Substance: OMEPRAZOLE
     Dosage: GLENMARK OMEPRAZOLE
     Route: 065

REACTIONS (8)
  - Faeces discoloured [Unknown]
  - Abdominal pain [Recovered/Resolved with Sequelae]
  - Inflammation [Unknown]
  - Fatigue [Recovered/Resolved]
  - Abdominal distension [Recovered/Resolved with Sequelae]
  - Faeces hard [Unknown]
  - Rectal haemorrhage [Recovered/Resolved]
  - Headache [Recovered/Resolved]
